FAERS Safety Report 25800500 (Version 1)
Quarter: 2025Q3

REPORT INFORMATION
  Report Type: Report from Study
  Country: CA (occurrence: CA)
  Receive Date: 20250915
  Receipt Date: 20250915
  Transmission Date: 20251020
  Serious: Yes (Death)
  Sender: ALEXION PHARMACEUTICALS
  Company Number: CA-AstraZeneca-CH-00948917A

PATIENT
  Sex: Female

DRUGS (6)
  1. TEZEPELUMAB [Suspect]
     Active Substance: TEZEPELUMAB
     Indication: Asthma
  2. TEZEPELUMAB [Suspect]
     Active Substance: TEZEPELUMAB
  3. FASENRA [Suspect]
     Active Substance: BENRALIZUMAB
     Route: 065
  4. FASENRA [Suspect]
     Active Substance: BENRALIZUMAB
  5. VENTOLIN [Concomitant]
     Active Substance: ALBUTEROL SULFATE
     Route: 065
  6. BREZTRI [Concomitant]
     Active Substance: BUDESONIDE\FORMOTEROL\GLYCOPYRROLATE
     Dosage: 160 MICROGRAM, BID

REACTIONS (1)
  - Organ failure [Fatal]
